FAERS Safety Report 8906150 (Version 1)
Quarter: 2012Q4

REPORT INFORMATION
  Report Type: 
  Country: US (occurrence: US)
  Receive Date: 20121112
  Receipt Date: 20121112
  Transmission Date: 20130627
  Serious: Yes (Other)
  Sender: FDA-Public Use
  Company Number: US-TEVA-369040USA

PATIENT
  Age: 10 Year
  Sex: Male
  Weight: 19 kg

DRUGS (11)
  1. FAMOTIDINE [Suspect]
     Route: 051
  2. PANTOPRAZOLE [Interacting]
     Route: 042
  3. PHENYTOIN [Interacting]
     Indication: CONVULSION
     Route: 065
  4. SUCRALFATE [Interacting]
     Route: 048
  5. POSACONAZOLE [Interacting]
     Indication: ZYGOMYCOSIS
     Dosage: Initial dose 100mg 3 times daily, then increased to 800mg every 6h
     Route: 050
  6. MICAFUNGIN [Concomitant]
     Indication: PROPHYLAXIS
     Route: 065
  7. AMPHOTERICIN B LIPOSOMAL [Concomitant]
     Indication: ZYGOMYCOSIS
     Route: 065
  8. CICLOSPORIN [Concomitant]
     Route: 065
  9. SIROLIMUS [Concomitant]
     Route: 065
  10. NIFEDIPINE [Concomitant]
     Route: 065
  11. AMPHOTERICIN B [Concomitant]
     Indication: WOUND TREATMENT
     Route: 065

REACTIONS (10)
  - Drug interaction [Unknown]
  - Drug level decreased [Unknown]
  - Encephalitis [Unknown]
  - Lacunar infarction [Unknown]
  - Sinusitis fungal [Unknown]
  - Osteonecrosis [Unknown]
  - Cellulitis orbital [Unknown]
  - Retching [Unknown]
  - Nausea [Unknown]
  - Vomiting [Unknown]
